FAERS Safety Report 24200054 (Version 1)
Quarter: 2024Q3

REPORT INFORMATION
  Report Type: Spontaneous
  Country: US (occurrence: None)
  Receive Date: 20240809
  Receipt Date: 20240809
  Transmission Date: 20241017
  Serious: Yes (Death)
  Sender: Public
  Company Number: None

PATIENT
  Age: 69 Year
  Sex: Female

DRUGS (1)
  1. LECANEMAB [Suspect]
     Active Substance: LECANEMAB
     Indication: Dementia Alzheimer^s type
     Dates: start: 20240529, end: 20240710

REACTIONS (3)
  - Brain oedema [None]
  - Hospice care [None]
  - Infusion related reaction [None]

NARRATIVE: CASE EVENT DATE: 20240712
